FAERS Safety Report 6593054-8 (Version None)
Quarter: 2010Q1

REPORT INFORMATION
  Report Type: 
  Country: None (occurrence: None)
  Receive Date: 20100222
  Receipt Date: 20100215
  Transmission Date: 20100710
  Serious: Yes (Hospitalization)
  Sender: FDA-Public Use
  Company Number: DE-MPIJNJ-2010-01020

PATIENT

DRUGS (2)
  1. VELCADE [Suspect]
     Indication: MULTIPLE MYELOMA
     Dosage: 2 MG, UNK
     Route: 042
     Dates: start: 20091130, end: 20100107
  2. CAELYX [Concomitant]
     Indication: MULTIPLE MYELOMA
     Dosage: UNK

REACTIONS (4)
  - DIZZINESS [None]
  - DYSPNOEA [None]
  - GASTROENTERITIS [None]
  - HYPERURICAEMIA [None]
